FAERS Safety Report 7953571-2 (Version None)
Quarter: 2011Q4

REPORT INFORMATION
  Report Type: 
  Country: None (occurrence: None)
  Receive Date: 20111202
  Receipt Date: 20111124
  Transmission Date: 20120403
  Serious: Yes (Death, Other)
  Sender: FDA-Public Use
  Company Number: IT-GENZYME-CERZ-1002320

PATIENT

DRUGS (1)
  1. CEREZYME [Suspect]
     Indication: GAUCHER'S DISEASE
     Dosage: 50 U/KG, Q2W
     Route: 042

REACTIONS (3)
  - HEAVY CHAIN DISEASE [None]
  - SEPTIC SHOCK [None]
  - NON-HODGKIN'S LYMPHOMA [None]
